FAERS Safety Report 11904285 (Version 1)
Quarter: 2016Q1

REPORT INFORMATION
  Report Type: Spontaneous
  Country: US (occurrence: US)
  Receive Date: 20160108
  Receipt Date: 20160108
  Transmission Date: 20160526
  Serious: No
  Sender: FDA-Public Use
  Company Number: US-ROCHE-1579684

PATIENT
  Sex: Female

DRUGS (1)
  1. RITUXAN [Suspect]
     Active Substance: RITUXIMAB
     Indication: CENTRAL NERVOUS SYSTEM LYMPHOMA
     Route: 065

REACTIONS (4)
  - Gastrointestinal motility disorder [Recovered/Resolved]
  - Memory impairment [Not Recovered/Not Resolved]
  - Abasia [Recovered/Resolved]
  - Drug ineffective [Unknown]
